FAERS Safety Report 5672414-3 (Version None)
Quarter: 2008Q1

REPORT INFORMATION
  Report Type: 
  Country: None (occurrence: None)
  Receive Date: 20080318
  Receipt Date: 20080318
  Transmission Date: 20080703
  Serious: Yes (Death, Life-Threatening, Hospitalization)
  Sender: FDA-Public Use
  Company Number: None

PATIENT
  Sex: Female
  Weight: 51.2565 kg

DRUGS (1)
  1. FENTANYL TRANSDERMAL SYSTEM [Suspect]
     Indication: BACK PAIN
     Dosage: 75MCG/HR EVERY 72 HOURS TRANSDERMAL
     Route: 062
     Dates: start: 20020105, end: 20080215

REACTIONS (10)
  - ACCIDENTAL OVERDOSE [None]
  - ASPIRATION [None]
  - FATIGUE [None]
  - GAIT DISTURBANCE [None]
  - GASTRIC DISORDER [None]
  - PAIN IN EXTREMITY [None]
  - PHARMACEUTICAL PRODUCT COMPLAINT [None]
  - RENAL FAILURE [None]
  - RESPIRATORY DISORDER [None]
  - VOMITING [None]
